FAERS Safety Report 7235344-1 (Version None)
Quarter: 2011Q1

REPORT INFORMATION
  Report Type: 
  Country: None (occurrence: None)
  Receive Date: 20110120
  Receipt Date: 20110111
  Transmission Date: 20110831
  Serious: Yes (Other)
  Sender: FDA-Public Use
  Company Number: US-JNJFOC-20091105314

PATIENT
  Sex: Female

DRUGS (3)
  1. LEVAQUIN [Suspect]
     Indication: ACUTE SINUSITIS
     Route: 048
  2. PREDNISONE [Suspect]
     Indication: CHRONIC OBSTRUCTIVE PULMONARY DISEASE
  3. LEVAQUIN [Suspect]
     Indication: BRONCHITIS
     Route: 048

REACTIONS (6)
  - SYNOVITIS [None]
  - PERIARTHRITIS [None]
  - TENDONITIS [None]
  - BURSA DISORDER [None]
  - PAIN IN EXTREMITY [None]
  - ROTATOR CUFF SYNDROME [None]
